FAERS Safety Report 5476485-9 (Version None)
Quarter: 2007Q3

REPORT INFORMATION
  Report Type: 
  Country: None (occurrence: None)
  Receive Date: 20070904
  Receipt Date: 20070612
  Transmission Date: 20080115
  Serious: No
  Sender: FDA-Public Use
  Company Number: PHEH2007US08698

PATIENT
  Sex: Female

DRUGS (2)
  1. ENABLEX [Suspect]
     Indication: MICTURITION URGENCY
     Dates: start: 20070201
  2. METHADONE HCL [Suspect]
     Indication: FIBROMYALGIA

REACTIONS (2)
  - FIBROMYALGIA [None]
  - MICTURITION URGENCY [None]
